FAERS Safety Report 7399677-0 (Version None)
Quarter: 2011Q2

REPORT INFORMATION
  Report Type: 
  Country: None (occurrence: None)
  Receive Date: 20110407
  Receipt Date: 20110331
  Transmission Date: 20111010
  Serious: Yes (Hospitalization)
  Sender: FDA-Public Use
  Company Number: US-ROCHE-725906

PATIENT
  Sex: Female
  Weight: 61.2 kg

DRUGS (22)
  1. BEVACIZUMAB [Suspect]
     Dosage: DRUG THERAPY ON HOLD.
     Route: 042
     Dates: end: 20100819
  2. ALBUTEROL SULFATE AND IPRATROPIUM BROMIDE [Concomitant]
     Dates: start: 20100701
  3. PEMETREXED [Suspect]
     Indication: NON-SMALL CELL LUNG CANCER
     Dosage: LAST DOSE PRIOR TO SAE: 29 JULY 2010
     Route: 042
     Dates: start: 20100707, end: 20100729
  4. CELEXA [Concomitant]
     Dates: start: 20100701
  5. ALLEGRA [Concomitant]
     Dates: start: 20100701
  6. BEVACIZUMAB [Suspect]
     Indication: NON-SMALL CELL LUNG CANCER
     Dosage: LAST DOSE PRIOR TO SAE: 29 JULY 2010
     Route: 042
     Dates: start: 20100707
  7. PREMPRO [Concomitant]
     Dates: start: 20100701
  8. FOLIC ACID [Concomitant]
     Dates: start: 20100702
  9. ZOFRAN [Concomitant]
     Dates: start: 20100707
  10. CALCIUM/ERGOCALCIFEROL [Concomitant]
     Dosage: REPORTED AS CALCIUM W/ VITAMIN D
  11. HYDROCODONE BITARTRATE [Concomitant]
     Dosage: REPORTED AS HYDROCODONE/HOMATROPINE
     Dates: start: 20100707
  12. CARBOPLATIN [Suspect]
     Dosage: DRUG THERAPY ON HOLD.
     Route: 042
     Dates: end: 20100819
  13. ASCORBIC ACID [Concomitant]
     Dates: start: 20100701
  14. CRESTOR [Concomitant]
     Dates: start: 20100701
  15. MEGACE [Concomitant]
     Dates: start: 20100819
  16. PEMETREXED [Suspect]
     Dosage: DRUG THERAPY ON HOLD.
     Route: 042
     Dates: end: 20100819
  17. OMEPRAZOLE [Concomitant]
     Dates: start: 20100701
  18. ADVAIR HFA [Concomitant]
     Dates: start: 20100701
  19. CARBOPLATIN [Suspect]
     Indication: NON-SMALL CELL LUNG CANCER
     Dosage: DOSE: 6 AUC LAST DOSE PRIOR TO SAE: 29 JULY 2010.
     Route: 042
     Dates: start: 20100707, end: 20100729
  20. FEXOFENADINE [Concomitant]
     Dates: start: 20100701
  21. SYNTHROID [Concomitant]
     Dates: start: 20100701
  22. VITAMIN B-12 [Concomitant]
     Dates: start: 20100702

REACTIONS (1)
  - PROCEDURAL COMPLICATION [None]
